FAERS Safety Report 5409780-X (Version None)
Quarter: 2007Q3

REPORT INFORMATION
  Report Type: 
  Country: None (occurrence: None)
  Receive Date: 20070809
  Receipt Date: 20070731
  Transmission Date: 20080115
  Serious: Yes (Death)
  Sender: FDA-Public Use
  Company Number: US-ROCHE-499769

PATIENT
  Age: 77 Year
  Sex: Female

DRUGS (3)
  1. BONIVA [Suspect]
     Indication: DRUG USE FOR UNKNOWN INDICATION
     Dosage: PRESCRIBED 07 AUGUST 2005 AND 11 AUGUST 2006 WITH 11 REFILLS EACH TIME
     Route: 048
  2. CALCIUM NOS [Concomitant]
  3. GLUCOSAMINE SULFATE/CHONDROITIN [Concomitant]

REACTIONS (2)
  - DEATH [None]
  - HIATUS HERNIA [None]
